FAERS Safety Report 18774588 (Version 1)
Quarter: 2021Q1

REPORT INFORMATION
  Report Type: Spontaneous
  Country: US (occurrence: US)
  Receive Date: 20210122
  Receipt Date: 20210122
  Transmission Date: 20210419
  Serious: No
  Sender: FDA-Public Use
  Company Number: US-BAYER-2021-030105

PATIENT
  Age: 70 Year
  Sex: Female

DRUGS (7)
  1. MIRALAX [Suspect]
     Active Substance: POLYETHYLENE GLYCOL 3350
     Indication: GASTROINTESTINAL DISORDER
     Dosage: 1 DF
     Route: 048
     Dates: start: 20201203, end: 20201203
  2. IRON [Concomitant]
     Active Substance: IRON
  3. BAYER LOW DOSE [Suspect]
     Active Substance: ASPIRIN
     Indication: PRODUCT USED FOR UNKNOWN INDICATION
     Dosage: 1 DF, QD
     Route: 048
  4. MIRALAX [Suspect]
     Active Substance: POLYETHYLENE GLYCOL 3350
     Indication: COLONOSCOPY
     Dosage: 1 DF
     Route: 048
     Dates: start: 20200312, end: 20210112
  5. MIRALAX [Suspect]
     Active Substance: POLYETHYLENE GLYCOL 3350
     Indication: COLONOSCOPY
     Dosage: 2 UNK
     Route: 048
     Dates: start: 20201229, end: 20201229
  6. MIRALAX [Suspect]
     Active Substance: POLYETHYLENE GLYCOL 3350
     Indication: COLONOSCOPY
     Dosage: 2 DF
     Route: 048
     Dates: start: 20210112
  7. HYDROCODONE [Concomitant]
     Active Substance: HYDROCODONE

REACTIONS (4)
  - Off label use [Unknown]
  - Incorrect product administration duration [None]
  - Faeces soft [Not Recovered/Not Resolved]
  - Product use in unapproved indication [None]

NARRATIVE: CASE EVENT DATE: 20210112
